FAERS Safety Report 24175102 (Version 1)
Quarter: 2024Q3

REPORT INFORMATION
  Report Type: Spontaneous
  Country: US (occurrence: US)
  Receive Date: 20240805
  Receipt Date: 20240805
  Transmission Date: 20241017
  Serious: Yes (Other)
  Sender: NEUROCRINE BIOSCIENCES
  Company Number: US-NEUROCRINE BIOSCIENCES INC.-2024NBI07522

PATIENT
  Sex: Female

DRUGS (1)
  1. INGREZZA [Suspect]
     Active Substance: VALBENAZINE
     Indication: Tremor
     Route: 065

REACTIONS (2)
  - Depression [Unknown]
  - Product use in unapproved indication [Unknown]
